FAERS Safety Report 14776977 (Version 1)
Quarter: 2018Q2

REPORT INFORMATION
  Report Type: Spontaneous
  Country: US (occurrence: US)
  Receive Date: 20180419
  Receipt Date: 20180419
  Transmission Date: 20180711
  Serious: No
  Sender: FDA-Public Use
  Company Number: US-TEVA-2018-US-866648

PATIENT
  Sex: Male

DRUGS (1)
  1. EZETIMIBE W/SIMVASTATIN [Suspect]
     Active Substance: EZETIMIBE
     Dosage: DOSE STRENGTH:  10/40 MG

REACTIONS (2)
  - Product size issue [Unknown]
  - Pruritus [Unknown]

NARRATIVE: CASE EVENT DATE: 201711
